FAERS Safety Report 19716825 (Version 1)
Quarter: 2021Q3

REPORT INFORMATION
  Report Type: Spontaneous
  Country: DE (occurrence: DE)
  Receive Date: 20210819
  Receipt Date: 20210819
  Transmission Date: 20211014
  Serious: Yes (Other)
  Sender: FDA-Public Use
  Company Number: DE-ASTRAZENECA-2021A679582

PATIENT
  Sex: Female

DRUGS (2)
  1. AVASTIN [Suspect]
     Active Substance: BEVACIZUMAB
     Dosage: UNKNOWN
     Route: 065
  2. LYNPARZA [Suspect]
     Active Substance: OLAPARIB
     Indication: OVARIAN CANCER
     Route: 048

REACTIONS (6)
  - White blood cell count decreased [Unknown]
  - Rheumatoid arthritis [Unknown]
  - Anaemia [Unknown]
  - Immunodeficiency [Unknown]
  - Iritis [Unknown]
  - Atrial fibrillation [Unknown]
